FAERS Safety Report 5541892-2 (Version None)
Quarter: 2007Q4

REPORT INFORMATION
  Report Type: 
  Country: None (occurrence: None)
  Receive Date: 20071205
  Receipt Date: 20071123
  Transmission Date: 20080405
  Serious: Yes (Death)
  Sender: FDA-Public Use
  Company Number: GXKR2007FR10143

PATIENT
  Age: 37 Year
  Sex: Male

DRUGS (3)
  1. AMOXICILLIN + CLAVULANATE POTASSIUM [Suspect]
     Dosage: 1 DF
     Dates: start: 20070921
  2. IBUPROFEN [Suspect]
     Dosage: 1 DF
     Dates: start: 20070921
  3. OMEPRAZOLE [Concomitant]

REACTIONS (5)
  - ANGIOEDEMA [None]
  - ASPHYXIA [None]
  - CARDIAC ARREST [None]
  - CONVULSION [None]
  - MALAISE [None]
